FAERS Safety Report 6312798-6 (Version None)
Quarter: 2009Q3

REPORT INFORMATION
  Report Type: 
  Country: None (occurrence: None)
  Receive Date: 20090817
  Receipt Date: 20090817
  Transmission Date: 20100115
  Serious: Yes (Other)
  Sender: FDA-Public Use
  Company Number: None

PATIENT
  Age: 6 Year
  Sex: Male
  Weight: 25.4014 kg

DRUGS (1)
  1. ALLER-TEC 10MG KIRKLAND/COSTCO [Suspect]
     Indication: SEASONAL ALLERGY
     Dosage: 10MG ONCE DAILY PO
     Route: 048
     Dates: start: 20090725, end: 20090809

REACTIONS (6)
  - ABDOMINAL PAIN UPPER [None]
  - CRYING [None]
  - EXCESSIVE EYE BLINKING [None]
  - FATIGUE [None]
  - MOOD ALTERED [None]
  - TIC [None]
